FAERS Safety Report 12788459 (Version 1)
Quarter: 2016Q3

REPORT INFORMATION
  Report Type: Spontaneous
  Country: US (occurrence: US)
  Receive Date: 20160928
  Receipt Date: 20160928
  Transmission Date: 20161109
  Serious: Yes (Death)
  Sender: FDA-Public Use
  Company Number: US-PFIZER INC-2016438692

PATIENT

DRUGS (1)
  1. IBRANCE [Suspect]
     Active Substance: PALBOCICLIB

REACTIONS (1)
  - Death [Fatal]
